FAERS Safety Report 6795304-1 (Version None)
Quarter: 2010Q2

REPORT INFORMATION
  Report Type: 
  Country: None (occurrence: None)
  Receive Date: 20100520
  Receipt Date: 20090702
  Transmission Date: 20101027
  Serious: Yes (Other)
  Sender: FDA-Public Use
  Company Number: 2009237277

PATIENT
  Age: 64 Year
  Sex: Female

DRUGS (6)
  1. PROVERA [Suspect]
     Indication: HORMONE REPLACEMENT THERAPY
     Dosage: 10 MG, ORAL ; 5 MG ; 2.5 MG
     Route: 048
     Dates: end: 19941101
  2. PROVERA [Suspect]
     Indication: HORMONE REPLACEMENT THERAPY
     Dosage: 10 MG, ORAL ; 5 MG ; 2.5 MG
     Route: 048
     Dates: start: 19941101, end: 19951201
  3. PROVERA [Suspect]
     Indication: HORMONE REPLACEMENT THERAPY
     Dosage: 10 MG, ORAL ; 5 MG ; 2.5 MG
     Route: 048
     Dates: start: 19980601, end: 19980701
  4. PREMARIN [Suspect]
     Indication: HORMONE REPLACEMENT THERAPY
     Dosage: 0.625 MG ; 1.25 MG
     Dates: end: 19951201
  5. PREMARIN [Suspect]
     Indication: HORMONE REPLACEMENT THERAPY
     Dosage: 0.625 MG ; 1.25 MG
     Dates: start: 19980601, end: 19980701
  6. PREMPRO [Suspect]
     Indication: HORMONE REPLACEMENT THERAPY
     Dosage: 0.625 MG, 2.5 MG
     Dates: start: 19951201, end: 19990401

REACTIONS (1)
  - BREAST CANCER [None]
